FAERS Safety Report 13690879 (Version 1)
Quarter: 2017Q2

REPORT INFORMATION
  Report Type: Spontaneous
  Country: US (occurrence: US)
  Receive Date: 20170626
  Receipt Date: 20170626
  Transmission Date: 20170830
  Serious: No
  Sender: FDA-Public Use
  Company Number: US-CLOVIS ONCOLOGY-CLO-2017-000496

PATIENT
  Age: 64 Year
  Sex: Female

DRUGS (2)
  1. RUBRACA [Suspect]
     Active Substance: RUCAPARIB CAMSYLATE
     Indication: OVARIAN CANCER
     Dosage: 600 MG, BID
     Route: 048
     Dates: start: 20170516, end: 20170526
  2. RUBRACA [Suspect]
     Active Substance: RUCAPARIB CAMSYLATE
     Dosage: 300 MG AM AND 600 MG PM
     Route: 048
     Dates: start: 20170527

REACTIONS (9)
  - Fatigue [Unknown]
  - Prescribed underdose [Unknown]
  - Sinus headache [Unknown]
  - Asthenia [Recovered/Resolved]
  - Sinus congestion [Unknown]
  - Nausea [Unknown]
  - Pruritus generalised [Unknown]
  - Flatulence [Unknown]
  - Abdominal pain upper [Unknown]

NARRATIVE: CASE EVENT DATE: 20170515
